FAERS Safety Report 11295105 (Version 2)
Quarter: 2015Q3

REPORT INFORMATION
  Report Type: Report from Study
  Country: BR (occurrence: BR)
  Receive Date: 20150723
  Receipt Date: 20150731
  Transmission Date: 20151125
  Serious: Yes (Hospitalization)
  Sender: FDA-Public Use
  Company Number: BR-ROCHE-1611348

PATIENT
  Sex: Female
  Weight: 26.7 kg

DRUGS (7)
  1. LUPRON [Concomitant]
     Active Substance: LEUPROLIDE ACETATE
  2. SALBUTAMOL [Concomitant]
     Active Substance: ALBUTEROL
  3. PULMOZYME [Suspect]
     Active Substance: DORNASE ALFA
     Indication: CYSTIC FIBROSIS
     Route: 065
  4. CIPROFLOXACIN. [Concomitant]
     Active Substance: CIPROFLOXACIN
  5. BUDESONIDE. [Concomitant]
     Active Substance: BUDESONIDE
  6. NUTREN [Concomitant]
  7. NIMESULIDE [Concomitant]
     Active Substance: NIMESULIDE

REACTIONS (1)
  - Infectious disease carrier [Unknown]
